FAERS Safety Report 9603186 (Version 2)
Quarter: 2013Q4

REPORT INFORMATION
  Report Type: Other
  Country: GB (occurrence: GB)
  Receive Date: 20131007
  Receipt Date: 20131007
  Transmission Date: 20140711
  Serious: Yes (Hospitalization)
  Sender: FDA-Public Use
  Company Number: GB-TAKEDA-2013TJP000507

PATIENT
  Sex: 0

DRUGS (5)
  1. LANSOPRAZOLE [Suspect]
     Dosage: UNK
  2. LAMOTRIGINE [Suspect]
     Indication: EPILEPSY
     Dosage: 100 MG, QID
     Route: 048
     Dates: end: 201307
  3. ASPIRIN [Concomitant]
  4. LACTULOSE [Concomitant]
  5. PARACETAMOL [Concomitant]

REACTIONS (1)
  - Hyponatraemia [Recovering/Resolving]
